FAERS Safety Report 8555452-2 (Version None)
Quarter: 2012Q3

REPORT INFORMATION
  Report Type: 
  Country: None (occurrence: None)
  Receive Date: 20120731
  Receipt Date: 20111003
  Transmission Date: 20120928
  Serious: No
  Sender: FDA-Public Use
  Company Number: US-ASTRAZENECA-2011SE17462

PATIENT
  Age: 42 Year
  Sex: Male
  Weight: 82.6 kg

DRUGS (4)
  1. HTN MEDICATIONS [Concomitant]
     Indication: HYPERTENSION
  2. SEROQUEL [Suspect]
     Route: 048
  3. CHOLESTEROL  MEDICATION [Concomitant]
     Indication: BLOOD CHOLESTEROL INCREASED
  4. SEROQUEL [Suspect]
     Indication: DEPRESSION
     Route: 048
     Dates: start: 20040101, end: 20110321

REACTIONS (4)
  - DRUG DOSE OMISSION [None]
  - APHONIA [None]
  - INSOMNIA [None]
  - NASOPHARYNGITIS [None]
